FAERS Safety Report 17240995 (Version 1)
Quarter: 2020Q1

REPORT INFORMATION
  Report Type: Spontaneous
  Country: GB (occurrence: GB)
  Receive Date: 20200107
  Receipt Date: 20200107
  Transmission Date: 20200409
  Serious: Yes (Other)
  Sender: FDA-Public Use
  Company Number: GB-TEVA-2019-GB-1162264

PATIENT
  Age: 14 Year
  Sex: Female
  Weight: 27 kg

DRUGS (1)
  1. METRONIDAZOLE. [Suspect]
     Active Substance: METRONIDAZOLE
     Dosage: 200 MILLIGRAM
     Dates: start: 20191201

REACTIONS (3)
  - Tongue blistering [Recovering/Resolving]
  - Mouth ulceration [Unknown]
  - Rash [Recovered/Resolved]

NARRATIVE: CASE EVENT DATE: 20191201
